FAERS Safety Report 17771528 (Version 1)
Quarter: 2020Q2

REPORT INFORMATION
  Report Type: Spontaneous
  Country: US (occurrence: US)
  Receive Date: 20200512
  Receipt Date: 20200512
  Transmission Date: 20200714
  Serious: Yes (Life-Threatening, Hospitalization)
  Sender: FDA-Public Use
  Company Number: US-TEVA-2020-US-1234061

PATIENT
  Age: 73 Year
  Sex: Female

DRUGS (1)
  1. METHOTREXATE. [Suspect]
     Active Substance: METHOTREXATE
     Indication: PEMPHIGOID
     Route: 065

REACTIONS (4)
  - Thrombocytopenia [Recovered/Resolved]
  - Epidermal necrosis [Recovered/Resolved]
  - Hypoalbuminaemia [Recovered/Resolved]
  - Toxicity to various agents [Recovered/Resolved]
